FAERS Safety Report 16961071 (Version 3)
Quarter: 2021Q1

REPORT INFORMATION
  Report Type: Report from Study
  Country: US (occurrence: US)
  Receive Date: 20191025
  Receipt Date: 20210208
  Transmission Date: 20210419
  Serious: Yes (Hospitalization, Other)
  Sender: FDA-Public Use
  Company Number: US-ROCHE-2444260

PATIENT
  Age: 67 Year
  Sex: Male
  Weight: 94.8 kg

DRUGS (36)
  1. CRESTOR [Concomitant]
     Active Substance: ROSUVASTATIN CALCIUM
     Route: 048
  2. HYDRALAZINE [Concomitant]
     Active Substance: HYDRALAZINE HYDROCHLORIDE
  3. LOSARTAN. [Concomitant]
     Active Substance: LOSARTAN
  4. ALBUTEROL. [Concomitant]
     Active Substance: ALBUTEROL
     Dosage: 2 PUFFS
     Route: 055
  5. FUROSEMIDE. [Concomitant]
     Active Substance: FUROSEMIDE
     Route: 048
  6. VINCRISTINE [Suspect]
     Active Substance: VINCRISTINE
     Indication: LYMPHOMA
     Dosage: FIRST DOSE ADMINISTERED ON 22/MAY/2019
     Route: 042
     Dates: end: 20190526
  7. ALLOPURINOL. [Concomitant]
     Active Substance: ALLOPURINOL
  8. ATIVAN [Concomitant]
     Active Substance: LORAZEPAM
  9. VENETOCLAX. [Suspect]
     Active Substance: VENETOCLAX
     Indication: LYMPHOMA
     Dosage: VENETOCLAX WILL BE ADMINISTERED ON 22/MAY/2019 ORALLY ON DAYS 3?12 IN CYCLE 1, AND DAYS 1?10 WITH AL
     Route: 048
     Dates: end: 20190526
  10. ACYCLOVIR. [Concomitant]
     Active Substance: ACYCLOVIR
     Route: 048
  11. LIPITOR [Concomitant]
     Active Substance: ATORVASTATIN CALCIUM
  12. ALBUTEROL. [Concomitant]
     Active Substance: ALBUTEROL
  13. CARVEDILOL. [Concomitant]
     Active Substance: CARVEDILOL
  14. CHOLECALCIFEROL [Concomitant]
     Active Substance: CHOLECALCIFEROL
     Dosage: 12.5*2
     Route: 048
  15. ALDACTONE [Concomitant]
     Active Substance: SPIRONOLACTONE
     Route: 048
  16. AMLODIPINE [Concomitant]
     Active Substance: AMLODIPINE BESYLATE
     Dosage: 2 TABLETS
     Route: 048
  17. AUGMENTIN [Concomitant]
     Active Substance: AMOXICILLIN\CLAVULANATE POTASSIUM
  18. CLONIDINE. [Concomitant]
     Active Substance: CLONIDINE
  19. LASIX [Concomitant]
     Active Substance: FUROSEMIDE
  20. NITROGLYCERIN. [Concomitant]
     Active Substance: NITROGLYCERIN
     Route: 048
  21. ONDANSETRON [Concomitant]
     Active Substance: ONDANSETRON
     Route: 048
  22. RITUXIMAB. [Suspect]
     Active Substance: RITUXIMAB
     Indication: LYMPHOMA
     Dosage: RITUXIMAB WILL BE ADMINISTERED ON 22/MAY/2019 AS AN IV INFUSION AT 375 MG/M2 ON DAY 1 OF EACH CYCLE
     Route: 041
     Dates: end: 20190526
  23. ETOPOSIDE. [Suspect]
     Active Substance: ETOPOSIDE
     Indication: LYMPHOMA
     Dosage: FIRST DOSE ADMINISTERED ON 22/MAY/2019
     Route: 042
     Dates: end: 20190526
  24. PREDNISONE. [Suspect]
     Active Substance: PREDNISONE
     Indication: LYMPHOMA
     Dosage: FIRST DOSE ADMINISTERED ON 22/MAY/2019
     Route: 048
     Dates: end: 20190526
  25. CYCLOPHOSPHAMIDE. [Suspect]
     Active Substance: CYCLOPHOSPHAMIDE
     Indication: LYMPHOMA
     Dosage: FIRST DOSE ADMINISTERED ON 22/MAY/2019
     Route: 042
     Dates: end: 20190526
  26. ZOFRAN [Concomitant]
     Active Substance: ONDANSETRON HYDROCHLORIDE
     Route: 042
  27. OMEPRAZOLE. [Concomitant]
     Active Substance: OMEPRAZOLE
     Route: 048
  28. BACTRIM DS [Concomitant]
     Active Substance: SULFAMETHOXAZOLE\TRIMETHOPRIM
     Dosage: 800?160 MG
     Route: 048
  29. NORCO [Concomitant]
     Active Substance: ACETAMINOPHEN\HYDROCODONE BITARTRATE
     Dosage: 5/325 MG
  30. MIRALAX [Concomitant]
     Active Substance: POLYETHYLENE GLYCOL 3350
  31. DOXORUBICIN [Suspect]
     Active Substance: DOXORUBICIN
     Indication: LYMPHOMA
     Dosage: FIRST DOSE ADMINISTERED ON 22/MAY/2019
     Route: 042
     Dates: end: 20190526
  32. OMEPRAZOLE. [Concomitant]
     Active Substance: OMEPRAZOLE
  33. UROCIT?K [Concomitant]
     Active Substance: POTASSIUM CITRATE
  34. COMPAZINE [Concomitant]
     Active Substance: PROCHLORPERAZINE MALEATE
     Route: 048
  35. DESYREL [Concomitant]
     Active Substance: TRAZODONE HYDROCHLORIDE
     Route: 048
  36. ACETAMINOPHEN. [Concomitant]
     Active Substance: ACETAMINOPHEN

REACTIONS (6)
  - Thrombocytopenia [Unknown]
  - Neutrophil count decreased [Recovered/Resolved]
  - Lymphocyte count decreased [Unknown]
  - White blood cell count decreased [Recovered/Resolved]
  - Haemorrhage intracranial [Recovered/Resolved]
  - Pancytopenia [Unknown]

NARRATIVE: CASE EVENT DATE: 20190226
